FAERS Safety Report 25995446 (Version 1)
Quarter: 2025Q4

REPORT INFORMATION
  Report Type: Spontaneous
  Country: US (occurrence: US)
  Receive Date: 20251104
  Receipt Date: 20251104
  Transmission Date: 20260118
  Serious: Yes (Hospitalization, Other)
  Sender: SANDOZ
  Company Number: US-SANDOZ-SDZ2025US081619

PATIENT
  Sex: Female
  Weight: 45.4 kg

DRUGS (16)
  1. AZITHROMYCIN [Suspect]
     Active Substance: AZITHROMYCIN
     Indication: Mycobacterium avium complex infection
     Dosage: 250 MG, QD, 22-JUL-2025
     Route: 048
     Dates: start: 202401
  2. ARIKAYCE [Suspect]
     Active Substance: AMIKACIN
     Indication: Mycobacterium avium complex infection
     Dosage: UNK
     Route: 055
     Dates: start: 202408, end: 202501
  3. BEDAQUILINE FUMARATE [Suspect]
     Active Substance: BEDAQUILINE FUMARATE
     Indication: Product used for unknown indication
     Dosage: 100 MG, QD
     Route: 048
  4. BREZTRI [Suspect]
     Active Substance: BUDESONIDE\FORMOTEROL\GLYCOPYRROLATE
     Indication: Product used for unknown indication
     Dosage: 2 PUFFS, 2 TIMES A DAY, STRENGTH-160-9-4.8 MCG/ACT AERO INHALER
     Route: 055
  5. CEFEPIME [Suspect]
     Active Substance: CEFEPIME HYDROCHLORIDE
     Indication: Product used for unknown indication
     Dosage: UNK
     Route: 065
  6. CLOFAZIMINE [Suspect]
     Active Substance: CLOFAZIMINE
     Indication: Product used for unknown indication
     Dosage: 100 MG, QD
     Route: 048
  7. DUONEB [Suspect]
     Active Substance: ALBUTEROL SULFATE\IPRATROPIUM BROMIDE
     Indication: Product used for unknown indication
     Dosage: 3 MLS, NEBULIZATION, EVERY 6 HOURS AS NEEDED, STRENGTH- 0.5-2.5 MG/3 ML0.5-2.5 MG/3 ML ML SOLN NEBUL
     Route: 065
  8. ETHAMBUTOL HYDROCHLORIDE [Suspect]
     Active Substance: ETHAMBUTOL HYDROCHLORIDE
     Indication: Mycobacterium avium complex infection
     Dosage: 800 MG, QD, STRENGTH- 400 MG, 28-AUG-2025 00:00
     Route: 048
     Dates: start: 202401
  9. MUCOMYST [Suspect]
     Active Substance: ACETYLCYSTEINE
     Indication: Product used for unknown indication
     Dosage: UNK, STRENGTH-10% NEBULIZER SOLUTION
     Route: 065
  10. MYAMBUTOL [Suspect]
     Active Substance: ETHAMBUTOL HYDROCHLORIDE
     Indication: Product used for unknown indication
     Dosage: 800 MG, STRENGTH- 400 MG
     Route: 048
  11. PROVENTIL [Suspect]
     Active Substance: ALBUTEROL
     Indication: Product used for unknown indication
     Dosage: STRENGTH- 2.5 MG/3 ML NEBULIZER SOLUTION
     Route: 055
  12. PROVENTIL HFA [Suspect]
     Active Substance: ALBUTEROL SULFATE
     Indication: Product used for unknown indication
     Dosage: 108 (90 BASE) MCG/ACT INHALER, STRENGTH-2 PUFFS, EVERY 6 HOURS AS NEEDED
     Route: 065
  13. RIFAMPIN [Suspect]
     Active Substance: RIFAMPIN
     Indication: Mycobacterium avium complex infection
     Dosage: 600 MG, QD, STRENGTH- 300 MG
     Route: 048
     Dates: start: 202401
  14. SODIUM CHLORIDE [Suspect]
     Active Substance: SODIUM CHLORIDE
     Dosage: 3% NEBULIZER SOLUTION 4 MLS, NEBULIZATION, 2 TIMES A DAY
     Route: 065
     Dates: start: 20250909
  15. SODIUM CHLORIDE [Suspect]
     Active Substance: SODIUM CHLORIDE
     Indication: Product used for unknown indication
     Dosage: 3% NEBULIZER SOLUTION 4 MLS, NEBULIZATION, 2 TIMES A DAY, USE 4ML VIALS
     Route: 065
     Dates: start: 20250828
  16. VITAMIN D3 [Suspect]
     Active Substance: CHOLECALCIFEROL
     Indication: Product used for unknown indication
     Dosage: 1,000 UNITS (25 MCG) TABLET, QD
     Route: 065

REACTIONS (9)
  - Mycobacterium avium complex infection [Unknown]
  - Condition aggravated [Unknown]
  - Dyspnoea [Unknown]
  - Productive cough [Unknown]
  - Pleuritic pain [Unknown]
  - Cough [Unknown]
  - Fatigue [Unknown]
  - Deafness [Unknown]
  - Therapy interrupted [Unknown]

NARRATIVE: CASE EVENT DATE: 20250101
